FAERS Safety Report 16042977 (Version 2)
Quarter: 2019Q2

REPORT INFORMATION
  Report Type: Spontaneous
  Country: SK (occurrence: SK)
  Receive Date: 20190306
  Receipt Date: 20190404
  Transmission Date: 20190711
  Serious: Yes (Death)
  Sender: FDA-Public Use
  Company Number: SK-ABBVIE-19S-260-2693541-00

PATIENT
  Age: 81 Year
  Sex: Female
  Weight: 65.5 kg

DRUGS (1)
  1. DUODOPA [Suspect]
     Active Substance: CARBIDOPA\LEVODOPA
     Indication: PARKINSON^S DISEASE
     Dosage: MD: 5ML;CD: 1.5 ML;ED: 1 ML
     Route: 050
     Dates: start: 20180921

REACTIONS (1)
  - Cardiac failure [Fatal]

NARRATIVE: CASE EVENT DATE: 201903
